FAERS Safety Report 7829063-8 (Version None)
Quarter: 2011Q4

REPORT INFORMATION
  Report Type: 
  Country: None (occurrence: None)
  Receive Date: 20111020
  Receipt Date: 20111018
  Transmission Date: 20120403
  Serious: No
  Sender: FDA-Public Use
  Company Number: US-TEVA-305743USA

PATIENT
  Sex: Female
  Weight: 65.83 kg

DRUGS (4)
  1. PLAN B ONE-STEP [Suspect]
     Indication: POST COITAL CONTRACEPTION
     Dosage: 1.5 MILLIGRAM;
     Route: 048
     Dates: start: 20111017, end: 20111017
  2. ACCOLATE [Concomitant]
     Indication: HYPERSENSITIVITY
  3. FLONASE [Concomitant]
     Indication: HYPERSENSITIVITY
  4. ALLEGRA [Concomitant]
     Indication: HYPERSENSITIVITY

REACTIONS (3)
  - FATIGUE [None]
  - ABDOMINAL PAIN [None]
  - BREAST TENDERNESS [None]
